FAERS Safety Report 20585926 (Version 1)
Quarter: 2022Q1

REPORT INFORMATION
  Report Type: Spontaneous
  Country: US (occurrence: None)
  Receive Date: 20220312
  Receipt Date: 20220312
  Transmission Date: 20220423
  Serious: Yes (Hospitalization)
  Sender: FDA-Public Use
  Company Number: US-ROCHE-2790569

PATIENT
  Age: 64 Year
  Sex: Male

DRUGS (1)
  1. ESBRIET [Suspect]
     Active Substance: PIRFENIDONE
     Indication: Systemic sclerosis pulmonary
     Route: 048
     Dates: start: 202003

REACTIONS (2)
  - Off label use [Unknown]
  - Fluid retention [Unknown]

NARRATIVE: CASE EVENT DATE: 20220301
